FAERS Safety Report 18453885 (Version 1)
Quarter: 2020Q4

REPORT INFORMATION
  Report Type: Spontaneous
  Country: ES (occurrence: ES)
  Receive Date: 20201102
  Receipt Date: 20201102
  Transmission Date: 20210114
  Serious: Yes (Disabling)
  Sender: FDA-Public Use
  Company Number: ES-PURDUE-USA-2020-0173946

PATIENT
  Age: 73 Year
  Sex: Male

DRUGS (2)
  1. MORPHINE SULFATE. [Suspect]
     Active Substance: MORPHINE SULFATE
     Indication: CANCER PAIN
     Dosage: 10 MG, Q12H
     Route: 065
     Dates: start: 2020
  2. MORPHINE SULFATE. [Suspect]
     Active Substance: MORPHINE SULFATE
     Dosage: 5 MG, UNK [SOMETIMES 5MG AS RESCUE]
     Route: 065
     Dates: start: 2020

REACTIONS (5)
  - Confusional state [Unknown]
  - Chromaturia [Unknown]
  - Tremor [Unknown]
  - Hyperhidrosis [Unknown]
  - Bedridden [Unknown]

NARRATIVE: CASE EVENT DATE: 2020
